FAERS Safety Report 11971851 (Version 2)
Quarter: 2016Q1

REPORT INFORMATION
  Report Type: Spontaneous
  Country: IT (occurrence: IT)
  Receive Date: 20160128
  Receipt Date: 20160204
  Transmission Date: 20160526
  Serious: Yes (Other)
  Sender: FDA-Public Use
  Company Number: IT-JNJFOC-20160120922

PATIENT
  Age: 42 Year
  Sex: Male
  Weight: 105 kg

DRUGS (1)
  1. STELARA [Suspect]
     Active Substance: USTEKINUMAB
     Indication: PSORIASIS
     Route: 058
     Dates: start: 20130410, end: 20151125

REACTIONS (1)
  - Rectal adenocarcinoma [Unknown]

NARRATIVE: CASE EVENT DATE: 20160108
